FAERS Safety Report 6554839-7 (Version None)
Quarter: 2010Q1

REPORT INFORMATION
  Report Type: 
  Country: None (occurrence: None)
  Receive Date: 20100127
  Receipt Date: 20100115
  Transmission Date: 20100710
  Serious: Yes (Other)
  Sender: FDA-Public Use
  Company Number: DE-GENENTECH-294391

PATIENT
  Sex: Female
  Weight: 61 kg

DRUGS (11)
  1. RITUXIMAB [Suspect]
     Indication: NON-HODGKIN'S LYMPHOMA
     Dosage: 375 MG/M2, UNK
     Route: 042
     Dates: start: 20080320, end: 20080417
  2. RITUXIMAB [Suspect]
     Dosage: 375 MG/M2, UNK
     Route: 042
     Dates: start: 20080502
  3. CYCLOPHOSPHAMIDE [Suspect]
     Indication: NON-HODGKIN'S LYMPHOMA
     Dosage: UNK
     Route: 042
     Dates: start: 20080326, end: 20080417
  4. CYCLOPHOSPHAMIDE [Suspect]
     Dosage: UNK
     Route: 042
     Dates: start: 20090508
  5. PREDNISOLONE [Suspect]
     Indication: NON-HODGKIN'S LYMPHOMA
     Dosage: UNK
     Route: 042
     Dates: start: 20080326, end: 20080417
  6. PREDNISOLONE [Suspect]
     Dosage: UNK
     Route: 042
     Dates: start: 20080508
  7. DOXORUBICIN HCL [Suspect]
     Indication: NON-HODGKIN'S LYMPHOMA
     Dosage: UNK
     Route: 042
     Dates: start: 20080326, end: 20080417
  8. DOXORUBICIN HCL [Suspect]
     Dosage: UNK
     Route: 042
     Dates: start: 20080508
  9. VINCRISTINE [Suspect]
     Indication: NON-HODGKIN'S LYMPHOMA
     Dosage: UNK
     Route: 042
     Dates: start: 20080326, end: 20080417
  10. VINCRISTINE [Suspect]
     Dosage: UNK
     Route: 042
     Dates: start: 20080508
  11. METHOTREXATE [Suspect]
     Indication: NON-HODGKIN'S LYMPHOMA
     Dosage: 15 MG, UNK
     Route: 042
     Dates: start: 20080327

REACTIONS (5)
  - CEREBRAL HAEMORRHAGE [None]
  - DEHYDRATION [None]
  - LEUKOPENIA [None]
  - SYNCOPE [None]
  - THROMBOCYTOPENIA [None]
